FAERS Safety Report 17540959 (Version 1)
Quarter: 2020Q1

REPORT INFORMATION
  Report Type: Spontaneous
  Country: SE (occurrence: SE)
  Receive Date: 20200313
  Receipt Date: 20200313
  Transmission Date: 20200409
  Serious: Yes (Death)
  Sender: FDA-Public Use
  Company Number: SE-JNJFOC-20200301786

PATIENT
  Age: 74 Year
  Sex: Male
  Weight: 85 kg

DRUGS (6)
  1. FOLACIN                            /00024201/ [Concomitant]
     Active Substance: FOLIC ACID
     Route: 065
  2. RISPERDAL [Suspect]
     Active Substance: RISPERIDONE
     Indication: HALLUCINATION
     Route: 065
     Dates: start: 20200106, end: 20200123
  3. MEMANTINE. [Concomitant]
     Active Substance: MEMANTINE
     Route: 065
  4. BEHEPAN                            /00056201/ [Concomitant]
     Active Substance: CYANOCOBALAMIN
     Route: 065
  5. INDERAL [Concomitant]
     Active Substance: PROPRANOLOL HYDROCHLORIDE
     Route: 065
  6. LOSARTAN. [Concomitant]
     Active Substance: LOSARTAN
     Indication: HALLUCINATION
     Route: 065
     Dates: start: 20200106, end: 20200123

REACTIONS (11)
  - Dysarthria [Fatal]
  - Fall [Fatal]
  - Pneumonia aspiration [Fatal]
  - Cognitive disorder [Fatal]
  - Glassy eyes [Fatal]
  - Hallucination [Fatal]
  - Restlessness [Fatal]
  - Depressed level of consciousness [Fatal]
  - Pyrexia [Fatal]
  - Oxygen saturation decreased [Fatal]
  - Dysphagia [Fatal]

NARRATIVE: CASE EVENT DATE: 202001
